FAERS Safety Report 15722512 (Version 1)
Quarter: 2018Q4

REPORT INFORMATION
  Report Type: Spontaneous
  Country: US (occurrence: US)
  Receive Date: 20181214
  Receipt Date: 20181214
  Transmission Date: 20190205
  Serious: Yes (Life-Threatening)
  Sender: FDA-Public Use
  Company Number: US-FRESENIUS KABI-FK201812715

PATIENT
  Age: 64 Year
  Sex: Male

DRUGS (2)
  1. DIPHENHYDRAMINE INJECTION (MANUFACTURER UNKNOWN) [Suspect]
     Active Substance: DIPHENHYDRAMINE
     Indication: PREMEDICATION
     Route: 042
  2. METHYLPREDNISOLONE (MANUFACTURER UNKNOWN) [Suspect]
     Active Substance: METHYLPREDNISOLONE
     Indication: PREMEDICATION
     Route: 042

REACTIONS (1)
  - Anaphylactic reaction [Recovered/Resolved]
